FAERS Safety Report 5211885-3 (Version None)
Quarter: 2007Q1

REPORT INFORMATION
  Report Type: 
  Country: None (occurrence: None)
  Receive Date: 20070111
  Receipt Date: 20061226
  Transmission Date: 20070707
  Serious: Yes (Other)
  Sender: FDA-Public Use
  Company Number: TOR-2006-0045

PATIENT
  Age: 60 Year
  Sex: Female

DRUGS (1)
  1. FARESTON [Suspect]
     Indication: BREAST CANCER
     Dosage: 40 MG ORAL
     Route: 048
     Dates: start: 20051001, end: 20061016

REACTIONS (3)
  - BLISTER [None]
  - CONDITION AGGRAVATED [None]
  - PAIN [None]
